FAERS Safety Report 21988256 (Version 1)
Quarter: 2023Q1

REPORT INFORMATION
  Report Type: Spontaneous
  Country: US (occurrence: US)
  Receive Date: 20230214
  Receipt Date: 20230214
  Transmission Date: 20230417
  Serious: No
  Sender: FDA-Public Use
  Company Number: US-AUROBINDO-AUR-APL-2022-054688

PATIENT
  Age: 73 Year
  Sex: Male

DRUGS (1)
  1. FAMOTIDINE [Suspect]
     Active Substance: FAMOTIDINE
     Indication: Product used for unknown indication
     Dosage: 40 MILLIGRAM, DAILY ( ONE 40 MG TABLET PER DAY)
     Route: 065
     Dates: start: 20211116, end: 20220725

REACTIONS (1)
  - Drug ineffective [Unknown]
